FAERS Safety Report 12890679 (Version 1)
Quarter: 2016Q4

REPORT INFORMATION
  Report Type: Spontaneous
  Country: US (occurrence: US)
  Receive Date: 20161027
  Receipt Date: 20161027
  Transmission Date: 20170207
  Serious: No
  Sender: FDA-Public Use
  Company Number: US-JAZZ-2016-US-015932

PATIENT
  Sex: Male

DRUGS (29)
  1. PREVALITE [Concomitant]
     Active Substance: CHOLESTYRAMINE
  2. TIZANIDINE HCL [Concomitant]
     Active Substance: TIZANIDINE HYDROCHLORIDE
  3. LOPERAMIDE [Concomitant]
     Active Substance: LOPERAMIDE
  4. METFORMIN HCL [Concomitant]
     Active Substance: METFORMIN HYDROCHLORIDE
  5. NOVOLOG [Concomitant]
     Active Substance: INSULIN ASPART
  6. LYRICA [Concomitant]
     Active Substance: PREGABALIN
  7. PIOGLITAZONE. [Concomitant]
     Active Substance: PIOGLITAZONE
  8. VICTOZA [Concomitant]
     Active Substance: LIRAGLUTIDE
  9. XYREM [Suspect]
     Active Substance: SODIUM OXYBATE
     Indication: NARCOLEPSY
     Dosage: 2.25 G, BID
     Route: 048
     Dates: start: 201409, end: 201409
  10. NUVIGIL [Concomitant]
     Active Substance: ARMODAFINIL
  11. SIMVASTATIN. [Concomitant]
     Active Substance: SIMVASTATIN
  12. XYREM [Suspect]
     Active Substance: SODIUM OXYBATE
     Dosage: 4.5 G, BID
     Route: 048
     Dates: start: 201410, end: 2016
  13. ACTOS [Suspect]
     Active Substance: PIOGLITAZONE HYDROCHLORIDE
     Indication: PRODUCT USED FOR UNKNOWN INDICATION
     Dosage: UNKNOWN DOSE
  14. OXAPROZIN. [Concomitant]
     Active Substance: OXAPROZIN
  15. VENLAFAXINE HCL [Concomitant]
     Active Substance: VENLAFAXINE HYDROCHLORIDE
  16. CARTIA XT [Concomitant]
     Active Substance: DILTIAZEM HYDROCHLORIDE
  17. FANAPT [Concomitant]
     Active Substance: ILOPERIDONE
  18. FUROSEMIDE. [Concomitant]
     Active Substance: FUROSEMIDE
  19. LISINOPRIL. [Concomitant]
     Active Substance: LISINOPRIL
  20. OMEPRAZOLE. [Concomitant]
     Active Substance: OMEPRAZOLE
  21. VENTOLIN HFA [Concomitant]
     Active Substance: ALBUTEROL SULFATE
  22. AEROSPAN [Concomitant]
     Active Substance: FLUNISOLIDE
  23. METOPROLOL SUCCINATE. [Concomitant]
     Active Substance: METOPROLOL SUCCINATE
  24. NORCO [Concomitant]
     Active Substance: ACETAMINOPHEN\HYDROCODONE BITARTRATE
  25. XYREM [Suspect]
     Active Substance: SODIUM OXYBATE
     Dosage: DOSE ADJUSTMENTS
     Route: 048
     Dates: start: 201409, end: 201410
  26. LAMICTAL [Concomitant]
     Active Substance: LAMOTRIGINE
  27. MONTELUKAST SODIUM. [Concomitant]
     Active Substance: MONTELUKAST SODIUM
  28. LANTUS [Concomitant]
     Active Substance: INSULIN GLARGINE
  29. VICODIN HP [Concomitant]
     Active Substance: ACETAMINOPHEN\HYDROCODONE BITARTRATE

REACTIONS (1)
  - Peripheral swelling [Unknown]
